FAERS Safety Report 24082040 (Version 5)
Quarter: 2024Q3

REPORT INFORMATION
  Report Type: Spontaneous
  Country: US (occurrence: US)
  Receive Date: 20240712
  Receipt Date: 20240806
  Transmission Date: 20241016
  Serious: Yes (Other)
  Sender: GLAXOSMITHKLINE
  Company Number: US-GLAXOSMITHKLINE-US2024AMR082718

PATIENT

DRUGS (16)
  1. ZEJULA [Suspect]
     Active Substance: NIRAPARIB
     Indication: Ovarian cancer
     Dosage: 200 MG, QD
     Route: 048
     Dates: start: 20240617
  2. ZEJULA [Suspect]
     Active Substance: NIRAPARIB
     Dosage: 100 MG, QD
     Route: 048
  3. ARMOUR THYROID [Concomitant]
     Active Substance: THYROID, PORCINE
     Indication: Product used for unknown indication
     Dosage: UNK
  4. METHYLCOBALAMIN [Concomitant]
     Active Substance: METHYLCOBALAMIN
     Indication: Product used for unknown indication
     Dosage: UNK
  5. PYRIDOXINE HYDROCHLORIDE [Concomitant]
     Active Substance: PYRIDOXINE HYDROCHLORIDE
     Indication: Product used for unknown indication
     Dosage: UNK
  6. CALCIUM [Concomitant]
     Active Substance: CALCIUM
     Indication: Product used for unknown indication
     Dosage: UNK
  7. COLCHICINE [Concomitant]
     Active Substance: COLCHICINE
     Indication: Product used for unknown indication
     Dosage: UNK
  8. Ester c [Concomitant]
     Indication: Product used for unknown indication
     Dosage: UNK
  9. FISH OIL [Concomitant]
     Active Substance: FISH OIL
     Indication: Product used for unknown indication
     Dosage: UNK
  10. FOLIC ACID [Concomitant]
     Active Substance: FOLIC ACID
     Indication: Product used for unknown indication
     Dosage: UNK
  11. GLUCOSAMINE [Concomitant]
     Active Substance: GLUCOSAMINE
     Indication: Product used for unknown indication
     Dosage: UNK
  12. LOSARTAN [Concomitant]
     Active Substance: LOSARTAN
     Indication: Product used for unknown indication
     Dosage: UNK
  13. MAGNESIUM [Concomitant]
     Active Substance: MAGNESIUM
     Indication: Product used for unknown indication
     Dosage: UNK
  14. METHYL SALICYLATE [Concomitant]
     Active Substance: METHYL SALICYLATE
     Indication: Product used for unknown indication
     Dosage: UNK
  15. PEPCID AC [Concomitant]
     Active Substance: FAMOTIDINE
     Indication: Product used for unknown indication
     Dosage: UNK
  16. ZINC [Concomitant]
     Active Substance: ZINC
     Indication: Product used for unknown indication
     Dosage: UNK

REACTIONS (15)
  - Neuropathy peripheral [Recovering/Resolving]
  - Blood pressure increased [Recovering/Resolving]
  - Anxiety [Recovering/Resolving]
  - Palpitations [Not Recovered/Not Resolved]
  - Dizziness [Not Recovered/Not Resolved]
  - Constipation [Recovering/Resolving]
  - Abdominal discomfort [Not Recovered/Not Resolved]
  - Sleep disorder [Not Recovered/Not Resolved]
  - Memory impairment [Not Recovered/Not Resolved]
  - Familial mediterranean fever [Not Recovered/Not Resolved]
  - Nerve injury [Unknown]
  - Nausea [Recovering/Resolving]
  - Myalgia [Recovering/Resolving]
  - Blood triglycerides increased [Recovering/Resolving]
  - Product dose omission issue [Unknown]

NARRATIVE: CASE EVENT DATE: 20240701
